FAERS Safety Report 4446191-8 (Version None)
Quarter: 2004Q3

REPORT INFORMATION
  Report Type: 
  Country: None (occurrence: None)
  Receive Date: 20040907
  Receipt Date: 20040820
  Transmission Date: 20050211
  Serious: Yes (Hospitalization)
  Sender: FDA-Public Use
  Company Number: 2004-BP-07063BP

PATIENT
  Age: 67 Year
  Sex: Female

DRUGS (11)
  1. SPIRIVA [Suspect]
     Indication: CHRONIC OBSTRUCTIVE AIRWAYS DISEASE
     Dosage: 18 MCG (18 MCG), IH
     Route: 055
     Dates: start: 20040816
  2. SPIRIVA [Suspect]
  3. VENTOLIN [Concomitant]
  4. FLOVENT [Concomitant]
  5. AMARYL [Concomitant]
  6. PLAVIX [Concomitant]
  7. PRINIVIL [Concomitant]
  8. TOPROL-XL [Concomitant]
  9. XANAX [Concomitant]
  10. DARVOCET [Concomitant]
  11. SURTAC [Concomitant]

REACTIONS (5)
  - CONSTIPATION [None]
  - DIARRHOEA [None]
  - DYSPNOEA EXACERBATED [None]
  - GAIT DISTURBANCE [None]
  - TREMOR [None]
